FAERS Safety Report 6730246-9 (Version None)
Quarter: 2010Q2

REPORT INFORMATION
  Report Type: 
  Country: None (occurrence: None)
  Receive Date: 20100513
  Receipt Date: 20100423
  Transmission Date: 20101027
  Serious: Yes (Other)
  Sender: FDA-Public Use
  Company Number: COM10-0540

PATIENT
  Age: 56 Year
  Sex: Male

DRUGS (8)
  1. CLONAZEPAM [Suspect]
     Indication: ANXIETY DISORDER
     Dosage: 1 PO, BID
     Dates: start: 20100422, end: 20100423
  2. SUPPLEMENTAL OXYGEN [Concomitant]
  3. ALBUTEROL [Concomitant]
  4. SYMBICORT [Concomitant]
  5. REMERON [Concomitant]
  6. AMBIEN [Concomitant]
  7. TRAMADOL HCL [Concomitant]
  8. TYLENOL [Concomitant]

REACTIONS (6)
  - AGITATION [None]
  - DRUG EFFECT DECREASED [None]
  - HEART RATE INCREASED [None]
  - INCORRECT DOSE ADMINISTERED [None]
  - RESPIRATORY RATE INCREASED [None]
  - TREMOR [None]
